FAERS Safety Report 15955134 (Version 2)
Quarter: 2019Q2

REPORT INFORMATION
  Report Type: Spontaneous
  Country: US (occurrence: US)
  Receive Date: 20190213
  Receipt Date: 20190626
  Transmission Date: 20190711
  Serious: No
  Sender: FDA-Public Use
  Company Number: US-PFIZER INC-2019058046

PATIENT
  Age: 55 Year
  Sex: Male
  Weight: 112 kg

DRUGS (1)
  1. GABAPENTIN. [Suspect]
     Active Substance: GABAPENTIN
     Indication: DIABETIC NEUROPATHY
     Dosage: 20 MG, 4X/DAY
     Dates: start: 201703, end: 201705

REACTIONS (1)
  - Drug ineffective [Unknown]
